FAERS Safety Report 22841561 (Version 2)
Quarter: 2023Q4

REPORT INFORMATION
  Report Type: Report from Study
  Country: CO (occurrence: CO)
  Receive Date: 20230821
  Receipt Date: 20231004
  Transmission Date: 20240110
  Serious: Yes (Hospitalization)
  Sender: FDA-Public Use
  Company Number: CO-JNJFOC-20230832421

PATIENT
  Sex: Female
  Weight: 50 kg

DRUGS (1)
  1. IMBRUVICA [Suspect]
     Active Substance: IBRUTINIB
     Indication: Waldenstrom^s macroglobulinaemia
     Dosage: LAST ADMIN DATE: 2023
     Route: 048
     Dates: start: 202304

REACTIONS (6)
  - Pituitary tumour [Unknown]
  - Amnesia [Unknown]
  - Hypotonia [Unknown]
  - Pneumonia [Unknown]
  - Aphasia [Unknown]
  - Coma [Unknown]
